FAERS Safety Report 11644767 (Version 1)
Quarter: 2015Q4

REPORT INFORMATION
  Report Type: Other
  Country: US (occurrence: US)
  Receive Date: 20151020
  Receipt Date: 20151020
  Transmission Date: 20160304
  Serious: No
  Sender: FDA-Public Use
  Company Number: US-DEP_03051_2015

PATIENT
  Age: 46 Year
  Sex: Female
  Weight: 92 kg

DRUGS (7)
  1. NUCYNTA ER [Suspect]
     Active Substance: TAPENTADOL HYDROCHLORIDE
     Indication: INTERVERTEBRAL DISC DEGENERATION
     Route: 048
     Dates: end: 20150612
  2. CARAFATE [Concomitant]
     Active Substance: SUCRALFATE
     Dosage: PRN
     Dates: end: 201501
  3. TANZEUM [Concomitant]
     Active Substance: ALBIGLUTIDE
     Dosage: ONCE PER WEEK ON WEDNESDAY NIGHT
     Dates: start: 2014
  4. TUMS [Concomitant]
     Active Substance: CALCIUM CARBONATE
     Dosage: DF
  5. FLEXERIL [Concomitant]
     Active Substance: CYCLOBENZAPRINE HYDROCHLORIDE
     Dosage: 3 TIMES A DAY, PRN
     Route: 048
  6. NUCYNTA ER [Suspect]
     Active Substance: TAPENTADOL HYDROCHLORIDE
     Indication: NERVE ROOT INJURY
     Route: 048
     Dates: start: 20150612
  7. NUCYNTA ER [Suspect]
     Active Substance: TAPENTADOL HYDROCHLORIDE
     Indication: PAIN
     Route: 048
     Dates: start: 2011

REACTIONS (4)
  - Pain [Recovered/Resolved]
  - Product quality issue [Unknown]
  - Drug ineffective [Recovered/Resolved]
  - Drug screen negative [Unknown]

NARRATIVE: CASE EVENT DATE: 201503
